FAERS Safety Report 8922450 (Version 2)
Quarter: 2013Q1

REPORT INFORMATION
  Report Type: Spontaneous
  Country: BR (occurrence: BR)
  Receive Date: 20121123
  Receipt Date: 20130311
  Transmission Date: 20140127
  Serious: Yes (Other)
  Sender: FDA-Public Use
  Company Number: PHHY2012BR105815

PATIENT
  Sex: Female

DRUGS (10)
  1. EXELON PATCH [Suspect]
     Indication: MEMORY IMPAIRMENT
     Dosage: 4.6 MG, / 24 HRS
     Route: 062
  2. EXELON PATCH [Suspect]
     Dosage: 9.5 MG,/ 24 HRS
     Route: 062
     Dates: end: 201211
  3. EXELON PATCH [Suspect]
     Dosage: 18 MG, / 24 HRS
     Route: 062
     Dates: start: 201212
  4. DIOVAN [Concomitant]
     Indication: HYPERTENSION
     Dosage: 1 DF, UNK
     Route: 048
     Dates: start: 2000
  5. NEBILET [Concomitant]
     Indication: HYPERTENSION
     Dosage: 1 DF, A DAY
     Route: 048
     Dates: start: 201203
  6. DIGOXIN [Concomitant]
     Indication: CARDIAC DISORDER
     Dosage: 1 DF, A DAY
     Route: 048
     Dates: start: 2000
  7. VICOG [Concomitant]
     Dosage: 1 DF, A DAY
     Route: 048
     Dates: start: 2011
  8. E-TABS [Concomitant]
     Dosage: 1 DF, A DAY
     Route: 048
     Dates: start: 2008
  9. LASIX [Concomitant]
     Indication: DIURETIC THERAPY
     Dosage: 3 DF, A WEEK
     Route: 048
     Dates: start: 2000
  10. VYTORIN [Concomitant]
     Indication: BLOOD CHOLESTEROL INCREASED
     Dates: start: 2008

REACTIONS (14)
  - Thrombosis [Recovering/Resolving]
  - Congestive cardiomyopathy [Not Recovered/Not Resolved]
  - Cardiac output decreased [Recovering/Resolving]
  - Cerebrovascular insufficiency [Recovering/Resolving]
  - Syncope [Recovering/Resolving]
  - Chondropathy [Recovered/Resolved]
  - Anaemia [Recovered/Resolved]
  - Urinary tract infection [Recovered/Resolved]
  - Blood cholesterol increased [Recovering/Resolving]
  - Abnormal behaviour [Recovering/Resolving]
  - Blood triglycerides increased [Recovering/Resolving]
  - Asthenia [Recovering/Resolving]
  - Vomiting [Recovering/Resolving]
  - Memory impairment [Recovering/Resolving]
